FAERS Safety Report 22377228 (Version 1)
Quarter: 2023Q2

REPORT INFORMATION
  Report Type: Report from Study
  Country: IT (occurrence: IT)
  Receive Date: 20230529
  Receipt Date: 20230529
  Transmission Date: 20230721
  Serious: Yes (Hospitalization)
  Sender: FDA-Public Use
  Company Number: None

PATIENT

DRUGS (2)
  1. NUCYNTA [Suspect]
     Active Substance: TAPENTADOL HYDROCHLORIDE
     Indication: Arthralgia
     Dosage: 50 MILLIGRAM, 1/DAY
     Route: 048
     Dates: start: 20230308, end: 20230308
  2. ORUDIS [Suspect]
     Active Substance: KETOPROFEN
     Indication: Arthralgia
     Dosage: 200 MILLIGRAM, 1/DAY
     Route: 048
     Dates: start: 20230308, end: 20230308

REACTIONS (4)
  - Asthenia [Not Recovered/Not Resolved]
  - Dizziness [Recovering/Resolving]
  - Dyspepsia [Recovering/Resolving]
  - Nausea [Recovering/Resolving]
